FAERS Safety Report 12546724 (Version 2)
Quarter: 2016Q3

REPORT INFORMATION
  Report Type: Spontaneous
  Country: JP (occurrence: JP)
  Receive Date: 20160711
  Receipt Date: 20160721
  Transmission Date: 20161109
  Serious: Yes (Death)
  Sender: FDA-Public Use
  Company Number: JP-PFIZER INC-2016316203

PATIENT
  Age: 8 Decade
  Sex: Male

DRUGS (1)
  1. BENEFIX [Suspect]
     Active Substance: COAGULATION FACTOR IX RECOMBINANT HUMAN\ISOPROPYL ALCOHOL
     Indication: FACTOR IX DEFICIENCY
     Dosage: 7000 IU, UNK
     Route: 042
     Dates: start: 20160618

REACTIONS (1)
  - Factor IX deficiency [Fatal]

NARRATIVE: CASE EVENT DATE: 20160630
